FAERS Safety Report 6066344-5 (Version None)
Quarter: 2009Q1

REPORT INFORMATION
  Report Type: 
  Country: None (occurrence: None)
  Receive Date: 20090130
  Receipt Date: 20090115
  Transmission Date: 20090719
  Serious: Yes (Other)
  Sender: FDA-Public Use
  Company Number: 2009000245

PATIENT

DRUGS (2)
  1. MACUGEN [Suspect]
     Indication: MACULAR DEGENERATION
     Dosage: 0.3 MG, INTRA-VITREAL
  2. VERTEPROFIN (VERTEPORFIN) [Concomitant]

REACTIONS (1)
  - MACULAR OEDEMA [None]
